FAERS Safety Report 11982153 (Version 3)
Quarter: 2016Q1

REPORT INFORMATION
  Report Type: Spontaneous
  Country: US (occurrence: US)
  Receive Date: 20160201
  Receipt Date: 20160309
  Transmission Date: 20160526
  Serious: Yes (Hospitalization)
  Sender: FDA-Public Use
  Company Number: US-BEH-2016058072

PATIENT
  Age: 71 Year
  Sex: Female
  Weight: 83 kg

DRUGS (27)
  1. LASIX [Concomitant]
     Active Substance: FUROSEMIDE
  2. RANITIDINE [Concomitant]
     Active Substance: RANITIDINE\RANITIDINE HYDROCHLORIDE
  3. CALCIUM [Concomitant]
     Active Substance: CALCIUM
  4. CELEXA [Concomitant]
     Active Substance: CITALOPRAM HYDROBROMIDE
  5. OXYGEN. [Concomitant]
     Active Substance: OXYGEN
  6. CIPRODEX [Concomitant]
     Active Substance: CIPROFLOXACIN HYDROCHLORIDE\DEXAMETHASONE
  7. HIZENTRA [Suspect]
     Active Substance: HUMAN IMMUNOGLOBULIN G
     Route: 058
     Dates: start: 20110830
  8. HIZENTRA [Suspect]
     Active Substance: HUMAN IMMUNOGLOBULIN G
     Indication: IMMUNODEFICIENCY COMMON VARIABLE
     Route: 058
     Dates: start: 20110830
  9. HIZENTRA [Suspect]
     Active Substance: HUMAN IMMUNOGLOBULIN G
     Route: 058
     Dates: start: 20110830
  10. CLONIDINE. [Concomitant]
     Active Substance: CLONIDINE
  11. MICARDIS [Concomitant]
     Active Substance: TELMISARTAN
  12. AMLODIPINE [Concomitant]
     Active Substance: AMLODIPINE BESYLATE
  13. DIPHENHYDRAMINE. [Concomitant]
     Active Substance: DIPHENHYDRAMINE
  14. LORATADINE. [Concomitant]
     Active Substance: LORATADINE
  15. STOOL SOFTENER [Concomitant]
     Active Substance: DOCUSATE CALCIUM
  16. HYDRALAZINE [Concomitant]
     Active Substance: HYDRALAZINE HYDROCHLORIDE
  17. GLUCOSAMINE + CHONDROITIN [Concomitant]
  18. HIZENTRA [Suspect]
     Active Substance: HUMAN IMMUNOGLOBULIN G
     Route: 058
     Dates: start: 20110830
  19. HIZENTRA [Suspect]
     Active Substance: HUMAN IMMUNOGLOBULIN G
     Dates: start: 20160112
  20. OXCARBAZEPINE. [Concomitant]
     Active Substance: OXCARBAZEPINE
  21. POTASSIUM [Concomitant]
     Active Substance: POTASSIUM
  22. OMEPRAZOLE. [Concomitant]
     Active Substance: OMEPRAZOLE
  23. PERPHEN [Concomitant]
  24. EPIPEN [Concomitant]
     Active Substance: EPINEPHRINE
  25. SINGULAIR [Concomitant]
     Active Substance: MONTELUKAST SODIUM
  26. MULTIVITAMIN [Concomitant]
     Active Substance: VITAMINS
  27. VITAMIN B12 [Concomitant]
     Active Substance: CYANOCOBALAMIN

REACTIONS (1)
  - Pneumonia [Unknown]

NARRATIVE: CASE EVENT DATE: 20160114
